FAERS Safety Report 7709102-5 (Version None)
Quarter: 2011Q3

REPORT INFORMATION
  Report Type: 
  Country: None (occurrence: None)
  Receive Date: 20110825
  Receipt Date: 20110810
  Transmission Date: 20111222
  Serious: Yes (Hospitalization)
  Sender: FDA-Public Use
  Company Number: PHHY2011JP29068

PATIENT
  Sex: Male
  Weight: 71 kg

DRUGS (3)
  1. CRESTOR [Concomitant]
     Dosage: 2.5 MG, UNK
     Route: 048
     Dates: start: 20080606, end: 20100818
  2. VALSARTAN [Suspect]
     Indication: HYPERTENSION
     Dosage: 80 MG, DAILY
     Route: 048
     Dates: start: 20080606, end: 20100818
  3. NORVASC [Concomitant]
     Indication: HYPERTENSION
     Dosage: 2.5 MG, UNK
     Route: 048
     Dates: start: 20080606, end: 20100818

REACTIONS (2)
  - LUNG NEOPLASM MALIGNANT [None]
  - BLOOD PRESSURE DECREASED [None]
